FAERS Safety Report 7386070-X (Version None)
Quarter: 2011Q1

REPORT INFORMATION
  Report Type: 
  Country: None (occurrence: None)
  Receive Date: 20110331
  Receipt Date: 20110322
  Transmission Date: 20110831
  Serious: Yes (Life-Threatening, Hospitalization)
  Sender: FDA-Public Use
  Company Number: FR-JNJFOC-20110306669

PATIENT
  Age: 52 Year
  Sex: Male

DRUGS (5)
  1. TOPALGIC [Suspect]
     Indication: BACK PAIN
     Route: 048
  2. DURAGESIC-100 [Suspect]
     Indication: BACK PAIN
     Dosage: 50 MCG/72H
     Route: 062
  3. DURAGESIC-100 [Suspect]
     Route: 062
  4. FLUVASTATIN [Concomitant]
     Indication: PRODUCT USED FOR UNKNOWN INDICATION
     Route: 065
  5. EXFORGE [Concomitant]
     Indication: PRODUCT USED FOR UNKNOWN INDICATION
     Route: 065

REACTIONS (7)
  - MALAISE [None]
  - PLEURAL EFFUSION [None]
  - RESPIRATORY DISTRESS [None]
  - CARDIAC FAILURE [None]
  - FALL [None]
  - RIB FRACTURE [None]
  - ATELECTASIS [None]
